FAERS Safety Report 15097471 (Version 4)
Quarter: 2018Q3

REPORT INFORMATION
  Report Type: Spontaneous
  Country: US (occurrence: US)
  Receive Date: 20180702
  Receipt Date: 20180810
  Transmission Date: 20181010
  Serious: No
  Sender: FDA-Public Use
  Company Number: US-CELGENEUS-USA-20180609589

PATIENT
  Sex: Male

DRUGS (4)
  1. HUMIRA [Suspect]
     Active Substance: ADALIMUMAB
     Indication: RHEUMATOID ARTHRITIS
     Dosage: 40 MILLIGRAM
     Route: 058
     Dates: start: 20180207
  2. HUMIRA [Suspect]
     Active Substance: ADALIMUMAB
     Indication: PSORIASIS
     Dosage: 40MG/0.8ML (40 MILLIGRAM, SOLUTION FOR INJECTION IN PRE?FILLED PEN)
     Route: 058
     Dates: start: 201607, end: 201801
  3. HUMIRA [Suspect]
     Active Substance: ADALIMUMAB
     Indication: PSORIATIC ARTHROPATHY
  4. OTEZLA [Suspect]
     Active Substance: APREMILAST
     Indication: PSORIASIS
     Route: 048

REACTIONS (11)
  - Constipation [Unknown]
  - Psoriasis [Not Recovered/Not Resolved]
  - Back pain [Unknown]
  - Drug effect decreased [Unknown]
  - Therapy non-responder [Unknown]
  - Pruritus [Unknown]
  - Skin irritation [Unknown]
  - Emotional distress [Unknown]
  - General physical condition abnormal [Unknown]
  - Abdominal distension [Unknown]
  - Pain [Unknown]

NARRATIVE: CASE EVENT DATE: 2018
